FAERS Safety Report 4956713-6 (Version None)
Quarter: 2006Q1

REPORT INFORMATION
  Report Type: 
  Country: None (occurrence: None)
  Receive Date: 20060329
  Receipt Date: 20060222
  Transmission Date: 20060701
  Serious: Yes (Life-Threatening, Other)
  Sender: FDA-Public Use
  Company Number: NL-GLAXOSMITHKLINE-B0414122A

PATIENT
  Age: 57 Year
  Sex: Female
  Weight: 120 kg

DRUGS (5)
  1. ROSIGLITAZONE MALEATE [Suspect]
     Dosage: 4MG PER DAY
     Route: 065
     Dates: start: 20040609, end: 20040616
  2. METFORMIN [Concomitant]
     Route: 065
     Dates: start: 20010208
  3. LIPITOR [Concomitant]
     Dosage: 10MG PER DAY
     Route: 065
     Dates: start: 20050218
  4. PANTAZOL [Concomitant]
     Dosage: 20MG PER DAY
  5. ALPRAZOLAM [Concomitant]
     Dosage: .5MG THREE TIMES PER DAY

REACTIONS (4)
  - CARDIAC DISORDER [None]
  - CHEST DISCOMFORT [None]
  - FLUID RETENTION [None]
  - OEDEMA PERIPHERAL [None]
